FAERS Safety Report 24568622 (Version 1)
Quarter: 2024Q4

REPORT INFORMATION
  Report Type: Spontaneous
  Country: AT (occurrence: AT)
  Receive Date: 20241031
  Receipt Date: 20241031
  Transmission Date: 20250114
  Serious: Yes (Other)
  Sender: ROCHE
  Company Number: DE-ROCHE-105739

PATIENT
  Age: 16 Year
  Sex: Female

DRUGS (11)
  1. MYCOPHENOLATE MOFETIL [Suspect]
     Active Substance: MYCOPHENOLATE MOFETIL
     Indication: Immunosuppression
     Route: 065
  2. MYCOPHENOLATE MOFETIL [Suspect]
     Active Substance: MYCOPHENOLATE MOFETIL
     Route: 065
  3. PREDNISONE [Concomitant]
     Active Substance: PREDNISONE
     Indication: Immunosuppression
     Route: 065
  4. TACROLIMUS [Concomitant]
     Active Substance: TACROLIMUS
     Indication: Immunosuppression
     Route: 065
  5. LEVOTHYROXINE SODIUM [Concomitant]
     Active Substance: LEVOTHYROXINE SODIUM
  6. CALCITRIOL [Concomitant]
     Active Substance: CALCITRIOL
  7. CYSTEAMINE [Concomitant]
     Active Substance: CYSTEAMINE
  8. ERYTHROPOIETIN [Concomitant]
     Active Substance: ERYTHROPOIETIN
  9. IRON [Concomitant]
     Active Substance: IRON
  10. DIHYDRALAZINE [Concomitant]
     Active Substance: DIHYDRALAZINE
  11. FUROSEMIDE [Concomitant]
     Active Substance: FUROSEMIDE

REACTIONS (7)
  - Blood lactate dehydrogenase increased [Unknown]
  - Thrombocytosis [Unknown]
  - Aplastic anaemia [Recovering/Resolving]
  - Haemoglobin decreased [Unknown]
  - Reticulocytopenia [Unknown]
  - Fatigue [Unknown]
  - Aplasia pure red cell [Recovered/Resolved]
